FAERS Safety Report 4688040-9 (Version None)
Quarter: 2005Q2

REPORT INFORMATION
  Report Type: 
  Country: None (occurrence: None)
  Receive Date: 20050610
  Receipt Date: 20050207
  Transmission Date: 20051028
  Serious: Yes (Life-Threatening, Hospitalization)
  Sender: FDA-Public Use
  Company Number: ES-ROCHE-394750

PATIENT
  Age: 69 Year
  Sex: Female
  Weight: 75 kg

DRUGS (3)
  1. CAPECITABINE [Suspect]
     Dosage: GIVEN ON DAYS 1 TO 14 OF A THREE WEEK CYCLE.
     Route: 048
     Dates: start: 20040805, end: 20050208
  2. PERTUZUMAB [Suspect]
     Route: 042
     Dates: start: 20040805, end: 20050208
  3. LEVOTHYROXINE [Concomitant]
     Dates: start: 20020615

REACTIONS (1)
  - PULMONARY EMBOLISM [None]
